FAERS Safety Report 15042925 (Version 1)
Quarter: 2018Q2

REPORT INFORMATION
  Report Type: Spontaneous
  Country: US (occurrence: US)
  Receive Date: 20180621
  Receipt Date: 20180621
  Transmission Date: 20180711
  Serious: Yes (Hospitalization, Other)
  Sender: FDA-Public Use
  Company Number: US-VIIV HEALTHCARE LIMITED-US2018109960

PATIENT
  Age: 40 Year
  Sex: Male

DRUGS (3)
  1. EDURANT [Suspect]
     Active Substance: RILPIVIRINE HYDROCHLORIDE
     Indication: HIV INFECTION
     Dosage: 25 MG, QD
     Route: 048
     Dates: start: 20180516, end: 20180612
  2. ABACAVIR. [Suspect]
     Active Substance: ABACAVIR
     Indication: HIV INFECTION
     Dosage: 300 MG, QD
     Route: 048
     Dates: start: 20180516, end: 20180612
  3. TIVICAY [Suspect]
     Active Substance: DOLUTEGRAVIR SODIUM
     Indication: HIV INFECTION
     Dosage: 50 MG, QD
     Route: 048
     Dates: start: 20180516, end: 20180611

REACTIONS (10)
  - Aphasia [Recovered/Resolved]
  - Cognitive disorder [Not Recovered/Not Resolved]
  - Neurological symptom [Recovering/Resolving]
  - Dysphemia [Recovering/Resolving]
  - Anxiety [Recovering/Resolving]
  - Hypoaesthesia [Recovered/Resolved]
  - Fatigue [Not Recovered/Not Resolved]
  - Speech disorder [Recovered/Resolved]
  - Memory impairment [Not Recovered/Not Resolved]
  - Immobile [Recovered/Resolved]

NARRATIVE: CASE EVENT DATE: 201806
